FAERS Safety Report 12693727 (Version 2)
Quarter: 2016Q4

REPORT INFORMATION
  Report Type: Spontaneous
  Country: US (occurrence: US)
  Receive Date: 20160829
  Receipt Date: 20161014
  Transmission Date: 20170207
  Serious: No
  Sender: FDA-Public Use
  Company Number: US-PFIZER INC-2016383376

PATIENT
  Age: 23 Year
  Sex: Male
  Weight: 52 kg

DRUGS (8)
  1. MORPHINE SULFATE. [Suspect]
     Active Substance: MORPHINE SULFATE
     Indication: PAIN MANAGEMENT
     Dosage: 60 MG, 2X/DAY (Q12 HRS)
     Route: 048
     Dates: start: 20140123
  2. OXYCODONE [Suspect]
     Active Substance: OXYCODONE
     Indication: PAIN MANAGEMENT
     Dosage: 30 MG, EVERY 4 HRS
     Route: 048
     Dates: start: 20150407, end: 20160802
  3. OXYCODONE [Suspect]
     Active Substance: OXYCODONE
     Indication: SICKLE CELL ANAEMIA
  4. MORPHINE SULFATE. [Suspect]
     Active Substance: MORPHINE SULFATE
     Indication: SICKLE CELL ANAEMIA WITH CRISIS
  5. DILAUDID [Suspect]
     Active Substance: HYDROMORPHONE HYDROCHLORIDE
     Dosage: 4 MG, UNK (NS BOLUS AND D5-1/2NS @ 125ML/HR)
     Route: 042
  6. MORPHINE SULFATE. [Suspect]
     Active Substance: MORPHINE SULFATE
     Indication: SICKLE CELL ANAEMIA
  7. DILAUDID [Suspect]
     Active Substance: HYDROMORPHONE HYDROCHLORIDE
     Dosage: 4 MG, UNK (NS BOLUS AND D5-1/2NS @ 125ML/HR)
     Route: 042
  8. DILAUDID [Suspect]
     Active Substance: HYDROMORPHONE HYDROCHLORIDE
     Indication: PAIN
     Dosage: 2 MG, UNK (NS BOLUS AND D5-1/2NS @ 125ML/HR)
     Route: 042

REACTIONS (1)
  - Drug ineffective [Unknown]
